FAERS Safety Report 23173800 (Version 1)
Quarter: 2023Q4

REPORT INFORMATION
  Report Type: Spontaneous
  Country: IT (occurrence: IT)
  Receive Date: 20231111
  Receipt Date: 20231111
  Transmission Date: 20240110
  Serious: Yes (Life-Threatening, Hospitalization)
  Sender: FDA-Public Use
  Company Number: IT-STERISCIENCE B.V.-2023-ST-002136

PATIENT
  Age: 25 Year
  Sex: Male

DRUGS (12)
  1. MEROPENEM [Suspect]
     Active Substance: MEROPENEM
     Indication: Meningococcal sepsis
     Dosage: UNK
     Route: 065
     Dates: start: 2023, end: 2023
  2. VANCOMYCIN [Suspect]
     Active Substance: VANCOMYCIN
     Indication: Meningococcal sepsis
     Dosage: UNK
     Route: 065
     Dates: start: 2023, end: 2023
  3. CLINDAMYCIN [Suspect]
     Active Substance: CLINDAMYCIN
     Indication: Meningococcal sepsis
     Dosage: UNK
     Route: 065
     Dates: start: 2023, end: 2023
  4. DAPTOMYCIN [Suspect]
     Active Substance: DAPTOMYCIN
     Indication: Meningococcal sepsis
     Dosage: UNK
     Route: 065
     Dates: start: 2023, end: 2023
  5. CEFEPIME [Suspect]
     Active Substance: CEFEPIME HYDROCHLORIDE
     Indication: Meningococcal sepsis
     Dosage: UNK
     Route: 065
     Dates: start: 2023, end: 2023
  6. CEFTRIAXONE [Suspect]
     Active Substance: CEFTRIAXONE\CEFTRIAXONE SODIUM
     Indication: Meningococcal sepsis
     Dosage: UNK
     Route: 065
     Dates: start: 2023, end: 2023
  7. MENINGOCOCCAL GROUP B VACCINE [Suspect]
     Active Substance: MENINGOCOCCAL GROUP B VACCINE
     Indication: Immunisation
     Dosage: UNK
     Route: 065
     Dates: start: 202112, end: 202112
  8. CLOSTRIDIUM TETANI TOXOID ANTIGEN (FORMALDEHYDE INACTIVATED)\MENINGOCO [Suspect]
     Active Substance: CLOSTRIDIUM TETANI TOXOID ANTIGEN (FORMALDEHYDE INACTIVATED)\MENINGOCOCCAL POLYSACCHARIDE VACCINE, G
     Indication: Meningococcal infection
  9. BEXSERO [Suspect]
     Active Substance: NEISSERIA MENINGITIDIS GROUP B FHBP FUSION PROTEIN ANTIGEN\NEISSERIA MENINGITIDIS GROUP B NADA PROTE
     Indication: Immunisation
     Dosage: UNK
     Route: 065
     Dates: start: 202201, end: 202201
  10. BEXSERO [Suspect]
     Active Substance: NEISSERIA MENINGITIDIS GROUP B FHBP FUSION PROTEIN ANTIGEN\NEISSERIA MENINGITIDIS GROUP B NADA PROTE
     Indication: Meningococcal infection
  11. RAVULIZUMAB [Concomitant]
     Active Substance: RAVULIZUMAB
     Indication: Paroxysmal nocturnal haemoglobinuria
     Dosage: UNK; INFUSION
     Route: 042
     Dates: start: 202203, end: 202302
  12. Immunoglobulin [Concomitant]
     Indication: Product used for unknown indication
     Dosage: 0.4 GRAM PER KILOGRAM, QD
     Route: 042
     Dates: start: 2023, end: 2023

REACTIONS (5)
  - Acute respiratory distress syndrome [None]
  - Septic shock [None]
  - Acute kidney injury [None]
  - Drug ineffective [Unknown]
  - Off label use [Unknown]

NARRATIVE: CASE EVENT DATE: 20230101
